FAERS Safety Report 18774452 (Version 1)
Quarter: 2021Q1

REPORT INFORMATION
  Report Type: Spontaneous
  Country: SE (occurrence: SE)
  Receive Date: 20210122
  Receipt Date: 20210122
  Transmission Date: 20210419
  Serious: Yes (Life-Threatening, Other)
  Sender: FDA-Public Use
  Company Number: SE-TEVA-579444ISR

PATIENT
  Age: 56 Year
  Sex: Male

DRUGS (1)
  1. MODIODAL 100 MG TABLETT [Suspect]
     Active Substance: MODAFINIL
     Indication: NARCOLEPSY
     Dosage: 400 MG/DAY
     Dates: start: 2009

REACTIONS (8)
  - Alcoholism [Not Recovered/Not Resolved]
  - Hallucination [Not Recovered/Not Resolved]
  - Mood swings [Not Recovered/Not Resolved]
  - Aggression [Not Recovered/Not Resolved]
  - Delusion [Not Recovered/Not Resolved]
  - Paranoia [Not Recovered/Not Resolved]
  - Suicidal ideation [Not Recovered/Not Resolved]
  - Psychotic disorder [Not Recovered/Not Resolved]

NARRATIVE: CASE EVENT DATE: 20120620
